FAERS Safety Report 25996041 (Version 1)
Quarter: 2025Q4

REPORT INFORMATION
  Report Type: Spontaneous
  Country: JP (occurrence: JP)
  Receive Date: 20251104
  Receipt Date: 20251104
  Transmission Date: 20260117
  Serious: Yes (Hospitalization)
  Sender: MDD OPERATIONS
  Company Number: JP-MDD US Operations-MDD202510-004385

PATIENT
  Age: 79 Year
  Sex: Female
  Weight: 37.5 kg

DRUGS (12)
  1. SAFINAMIDE [Suspect]
     Active Substance: SAFINAMIDE
     Indication: Product used for unknown indication
     Dosage: 100MG PER DAY
  2. SAFINAMIDE [Suspect]
     Active Substance: SAFINAMIDE
     Dosage: 50MG PER DAY ON DAY 20
  3. SAFINAMIDE [Suspect]
     Active Substance: SAFINAMIDE
     Dosage: 25MG PER DAY ON DAY 27
  4. LEVODOPA [Suspect]
     Active Substance: LEVODOPA
     Indication: Product used for unknown indication
     Dosage: 0.25ML PER HOUR CONTINUOUS SUBCUTANEOUS INFUSION (CSCI)
     Route: 058
  5. LEVODOPA [Suspect]
     Active Substance: LEVODOPA
     Dosage: 0.18 ML PER HOUR CONTINUOUS SUBCUTANEOUS INFUSION (CSCI) ON DAY 9
     Route: 058
  6. LEVODOPA [Suspect]
     Active Substance: LEVODOPA
     Dosage: 0.25ML PER HOUR CONTINUOUS SUBCUTANEOUS INFUSION (CSCI) ON DAY 10
     Route: 058
  7. LEVODOPA [Suspect]
     Active Substance: LEVODOPA
     Dosage: 0.25ML PER HOUR CONTINUOUS SUBCUTANEOUS INFUSION (CSCI) ON DAY 38
     Route: 058
  8. LEVODOPA [Suspect]
     Active Substance: LEVODOPA
     Dosage: 0.25ML PER HOUR CONTINUOUS SUBCUTANEOUS INFUSION (CSCI) ON DAY 45
     Route: 058
  9. CARBIDOPA\LEVODOPA [Concomitant]
     Active Substance: CARBIDOPA\LEVODOPA
     Dosage: 550MG PER DAY
  10. ZONISAMIDE [Concomitant]
     Active Substance: ZONISAMIDE
     Dosage: 50MG PER DAY
  11. OPICAPONE [Concomitant]
     Active Substance: OPICAPONE
     Dosage: 25MG PER DAY
  12. MIDAZOLAM [Concomitant]
     Active Substance: MIDAZOLAM
     Dosage: NOT PROVIDED

REACTIONS (1)
  - Dyskinesia hyperpyrexia syndrome [Unknown]
